FAERS Safety Report 4398385-8 (Version None)
Quarter: 2004Q3

REPORT INFORMATION
  Report Type: 
  Country: None (occurrence: None)
  Receive Date: 20040715
  Receipt Date: 20040421
  Transmission Date: 20050211
  Serious: Yes (Other)
  Sender: FDA-Public Use
  Company Number: JP-MERCK-0404USA02253

PATIENT
  Age: 78 Year
  Sex: Female

DRUGS (2)
  1. GASTROM [Concomitant]
     Route: 048
     Dates: start: 20020805, end: 20031105
  2. PEPCID [Suspect]
     Indication: GASTRITIS
     Route: 048
     Dates: start: 20020805, end: 20031105

REACTIONS (3)
  - APLASTIC ANAEMIA [None]
  - MYELODYSPLASTIC SYNDROME [None]
  - PANCYTOPENIA [None]
